FAERS Safety Report 7997913-0 (Version None)
Quarter: 2011Q4

REPORT INFORMATION
  Report Type: 
  Country: None (occurrence: None)
  Receive Date: 20111221
  Receipt Date: 20111214
  Transmission Date: 20120403
  Serious: Yes (Hospitalization)
  Sender: FDA-Public Use
  Company Number: PHHY2011IN100541

PATIENT
  Age: 77 Year
  Sex: Female

DRUGS (2)
  1. RISEDRONATE SODIUM [Suspect]
     Indication: SPINAL FRACTURE
     Dosage: UNK
     Route: 048
  2. ZOLEDRONIC ACID [Suspect]
     Indication: SPINAL FRACTURE
     Dosage: 4 MG
     Route: 042

REACTIONS (10)
  - HAEMOGLOBIN DECREASED [None]
  - ERYTHEMA [None]
  - PAIN IN JAW [None]
  - SWELLING [None]
  - PYREXIA [None]
  - RED BLOOD CELL SEDIMENTATION RATE INCREASED [None]
  - TRISMUS [None]
  - OSTEONECROSIS OF JAW [None]
  - WHITE BLOOD CELL COUNT DECREASED [None]
  - DECREASED APPETITE [None]
